FAERS Safety Report 9753125 (Version 2)
Quarter: 2015Q3

REPORT INFORMATION
  Report Type: Spontaneous
  Country: US (occurrence: US)
  Receive Date: 20131213
  Receipt Date: 20150805
  Transmission Date: 20151125
  Serious: No
  Sender: FDA-Public Use
  Company Number: US-GILEAD-2010-0026340

PATIENT
  Age: 82 Year
  Sex: Male

DRUGS (17)
  1. VITAMIN D [Concomitant]
     Active Substance: CHOLECALCIFEROL
  2. LETAIRIS [Suspect]
     Active Substance: AMBRISENTAN
     Indication: PULMONARY ARTERIAL HYPERTENSION
  3. ALBUTEROL. [Concomitant]
     Active Substance: ALBUTEROL
  4. ALLOPURINOL. [Concomitant]
     Active Substance: ALLOPURINOL
  5. CALCIUM ACETATE. [Concomitant]
     Active Substance: CALCIUM ACETATE
  6. REVATIO [Concomitant]
     Active Substance: SILDENAFIL CITRATE
  7. SPIRONOLACTONE. [Concomitant]
     Active Substance: SPIRONOLACTONE
  8. METOLAZONE. [Concomitant]
     Active Substance: METOLAZONE
  9. ZEMPLAR [Concomitant]
     Active Substance: PARICALCITOL
  10. DIOVAN [Concomitant]
     Active Substance: VALSARTAN
  11. PRAVACHOL [Concomitant]
     Active Substance: PRAVASTATIN SODIUM
  12. SPIRIVA [Concomitant]
     Active Substance: TIOTROPIUM BROMIDE MONOHYDRATE
  13. SYNTHROID [Concomitant]
     Active Substance: LEVOTHYROXINE SODIUM
  14. HUMALOG PEN [Concomitant]
     Active Substance: INSULIN LISPRO
  15. BUMETANIDE. [Concomitant]
     Active Substance: BUMETANIDE
  16. PREVACID [Concomitant]
     Active Substance: LANSOPRAZOLE
  17. MULTIVITAMIN [Concomitant]
     Active Substance: VITAMINS

REACTIONS (1)
  - Peripheral swelling [Not Recovered/Not Resolved]

NARRATIVE: CASE EVENT DATE: 200912
